FAERS Safety Report 9648664 (Version 1)
Quarter: 2013Q4

REPORT INFORMATION
  Report Type: Spontaneous
  Country: US (occurrence: US)
  Receive Date: 20131028
  Receipt Date: 20131028
  Transmission Date: 20140711
  Serious: No
  Sender: FDA-Public Use
  Company Number: US-BAUSCH-BL-2013-004312

PATIENT
  Age: 64 Year
  Sex: Female

DRUGS (4)
  1. PROPARACAINE HYDROCHLORIDE OPHTHALMIC SOLUTION USP 0.5% [Suspect]
     Indication: OPHTHALMOLOGICAL EXAMINATION
     Dosage: DROP; RIGHT EYE
     Route: 047
     Dates: start: 20130717, end: 20130717
  2. PROPARACAINE HYDROCHLORIDE OPHTHALMIC SOLUTION USP 0.5% [Suspect]
     Dosage: DROP; LEFT EYE
     Route: 047
     Dates: start: 20130717, end: 20130717
  3. INSULIN [Concomitant]
     Indication: TYPE 1 DIABETES MELLITUS
     Dosage: 25 UNITS; INTAMUSCULAR
     Route: 030
  4. INSULIN [Concomitant]
     Dosage: 60 UNITS; INJECTION
     Route: 030

REACTIONS (5)
  - Blood pressure increased [Recovered/Resolved]
  - Increased insulin requirement [Recovered/Resolved]
  - Vertigo [Recovering/Resolving]
  - Alopecia [Not Recovered/Not Resolved]
  - Dyspepsia [Unknown]
